FAERS Safety Report 20890206 (Version 1)
Quarter: 2022Q2

REPORT INFORMATION
  Report Type: Spontaneous
  Country: TR (occurrence: TR)
  Receive Date: 20220530
  Receipt Date: 20220530
  Transmission Date: 20220721
  Serious: Yes (Hospitalization)
  Sender: FDA-Public Use
  Company Number: TR-STRIDES ARCOLAB LIMITED-2022SP006213

PATIENT
  Sex: Female

DRUGS (3)
  1. HALOPERIDOL [Suspect]
     Active Substance: HALOPERIDOL
     Indication: Schizophrenia
     Dosage: ADMINISTERED 10 TO 20 MG, PER DAY
     Route: 065
     Dates: start: 1998
  2. HALOPERIDOL [Suspect]
     Active Substance: HALOPERIDOL
     Dosage: 15 MILLIGRAM, PER DAY
     Route: 065
  3. BIPERIDEN [Suspect]
     Active Substance: BIPERIDEN
     Indication: Schizophrenia
     Dosage: 4 MILLIGRAM, PER DAY
     Route: 065

REACTIONS (1)
  - Myoclonus [Recovered/Resolved]
